FAERS Safety Report 24146822 (Version 3)
Quarter: 2024Q3

REPORT INFORMATION
  Report Type: Spontaneous
  Country: DE (occurrence: DE)
  Receive Date: 20240729
  Receipt Date: 20240930
  Transmission Date: 20241016
  Serious: Yes (Death, Life-Threatening, Hospitalization, Other)
  Sender: SERVIER
  Company Number: DE-SERVIER-S24009294

PATIENT

DRUGS (1)
  1. ONCASPAR [Suspect]
     Active Substance: PEGASPARGASE
     Indication: Acute lymphocytic leukaemia
     Dosage: 2180 MG
     Route: 042
     Dates: start: 20240703, end: 20240703

REACTIONS (4)
  - Hepatotoxicity [Fatal]
  - Hepatic failure [Unknown]
  - Hepatic encephalopathy [Unknown]
  - Tissue injury [Unknown]

NARRATIVE: CASE EVENT DATE: 20240711
